FAERS Safety Report 6574326-X (Version None)
Quarter: 2010Q1

REPORT INFORMATION
  Report Type: 
  Country: None (occurrence: None)
  Receive Date: 20100208
  Receipt Date: 20100129
  Transmission Date: 20100710
  Serious: Yes (Hospitalization, Other)
  Sender: FDA-Public Use
  Company Number: CHPA2010US02594

PATIENT
  Sex: Male

DRUGS (11)
  1. THERAFLU UNKNOWN (NCH) [Suspect]
     Dosage: UNK, BID FOR 4-5 DAYS
     Route: 048
     Dates: start: 20091001
  2. ^AMG 157 - BLINDED^ [Suspect]
     Indication: ASTHMA
     Dosage: BLINDED, UNK
     Route: 058
     Dates: start: 20090915, end: 20091110
  3. ACETAMINOPHEN [Suspect]
     Dosage: 500 MG, PRN
     Route: 048
     Dates: start: 20091001
  4. ACETAMINOPHEN [Suspect]
     Dosage: 650 MG, BID PRN
     Route: 048
     Dates: start: 20091215, end: 20091216
  5. NYQUIL [Suspect]
     Dosage: UNK, UNK
     Dates: start: 20091101
  6. TYLENOL [Suspect]
     Dosage: UNK, UNK
     Route: 048
     Dates: start: 20091020
  7. ALCOHOL [Suspect]
     Dosage: UNK, UNK
     Route: 048
  8. IBUPROFEN [Concomitant]
     Dosage: 600 MG, PRN
     Route: 048
  9. MIDAZOLAM HYDROCHLORIDE [Concomitant]
  10. FENTANYL [Concomitant]
  11. DRUG THERAPY NOS [Concomitant]
     Route: 042

REACTIONS (18)
  - ABDOMINAL PAIN UPPER [None]
  - ALANINE AMINOTRANSFERASE INCREASED [None]
  - ASPARTATE AMINOTRANSFERASE INCREASED [None]
  - BLOOD ALKALINE PHOSPHATASE INCREASED [None]
  - BLOOD BILIRUBIN INCREASED [None]
  - DECREASED APPETITE [None]
  - DRUG ADMINISTRATION ERROR [None]
  - DYSURIA [None]
  - GAMMA-GLUTAMYLTRANSFERASE INCREASED [None]
  - H1N1 INFLUENZA [None]
  - HEADACHE [None]
  - HEPATITIS [None]
  - JAUNDICE [None]
  - LIVER FUNCTION TEST ABNORMAL [None]
  - NASOPHARYNGITIS [None]
  - NAUSEA [None]
  - PROTHROMBIN TIME PROLONGED [None]
  - PYREXIA [None]
